FAERS Safety Report 24212206 (Version 2)
Quarter: 2024Q3

REPORT INFORMATION
  Report Type: Spontaneous
  Country: US (occurrence: US)
  Receive Date: 20240815
  Receipt Date: 20240823
  Transmission Date: 20241016
  Serious: No
  Sender: ABBVIE
  Company Number: US-ABBVIE-5878016

PATIENT
  Sex: Female

DRUGS (1)
  1. LINZESS [Suspect]
     Active Substance: LINACLOTIDE
     Indication: Product used for unknown indication
     Route: 048
     Dates: start: 2019

REACTIONS (6)
  - Product quality issue [Unknown]
  - Abdominal pain upper [Unknown]
  - Drug ineffective [Not Recovered/Not Resolved]
  - Abdominal distension [Unknown]
  - Symptom recurrence [Unknown]
  - Unevaluable event [Unknown]
